FAERS Safety Report 9892745 (Version 2)
Quarter: 2014Q1

REPORT INFORMATION
  Report Type: Spontaneous
  Country: US (occurrence: US)
  Receive Date: 20140212
  Receipt Date: 20140219
  Transmission Date: 20141002
  Serious: Yes (Hospitalization)
  Sender: FDA-Public Use
  Company Number: US-BAXTER-2014BAX006797

PATIENT
  Age: 66 Year
  Sex: Male

DRUGS (1)
  1. DIANEAL LOW CALCIUM [Suspect]
     Indication: PERITONEAL DIALYSIS
     Route: 033
     Dates: start: 2012

REACTIONS (4)
  - Pain in extremity [Recovering/Resolving]
  - Haemoglobin decreased [Recovered/Resolved]
  - Vomiting [Recovered/Resolved]
  - Musculoskeletal pain [Recovered/Resolved]
